FAERS Safety Report 19658023 (Version 4)
Quarter: 2024Q2

REPORT INFORMATION
  Report Type: Report from Study
  Country: BR (occurrence: BR)
  Receive Date: 20210804
  Receipt Date: 20240610
  Transmission Date: 20240716
  Serious: Yes (Other)
  Sender: FDA-Public Use
  Company Number: BR-TAKEDA-2021TUS045448

PATIENT
  Age: 32 Year
  Sex: Male
  Weight: 70 kg

DRUGS (11)
  1. VEDOLIZUMAB [Suspect]
     Active Substance: VEDOLIZUMAB
     Indication: Colitis ulcerative
     Dosage: 300 MILLIGRAM
     Route: 042
     Dates: start: 20211201
  2. MESALAMINE [Suspect]
     Active Substance: MESALAMINE
     Indication: Colitis ulcerative
     Dosage: 400 MILLIGRAM, TID
     Route: 065
  3. MESALAMINE [Suspect]
     Active Substance: MESALAMINE
     Dosage: 4000 MILLIGRAM, QD
     Route: 065
     Dates: start: 2012, end: 202012
  4. MESALAMINE [Suspect]
     Active Substance: MESALAMINE
     Indication: Colitis ulcerative
     Dosage: 4800 MILLIGRAM
     Route: 065
  5. AZATHIOPRINE [Suspect]
     Active Substance: AZATHIOPRINE
     Indication: Colitis ulcerative
     Dosage: 200 MILLIGRAM, QD
     Route: 065
     Dates: start: 202101, end: 202103
  6. REMICADE [Concomitant]
     Active Substance: INFLIXIMAB
     Indication: Colitis ulcerative
     Dosage: UNK
     Dates: start: 20210128
  7. REMICADE [Concomitant]
     Active Substance: INFLIXIMAB
     Dosage: UNK
     Route: 065
     Dates: start: 202102, end: 202106
  8. PREDNISONE [Concomitant]
     Active Substance: PREDNISONE
     Dosage: 40 MILLIGRAM, QD
  9. CHLORAMPHENICOL\PREDNISOLONE [Concomitant]
     Active Substance: CHLORAMPHENICOL\PREDNISOLONE
     Dosage: UNK
  10. INFLIXIMAB [Concomitant]
     Active Substance: INFLIXIMAB
     Dosage: UNK
  11. ADALIMUMAB [Concomitant]
     Active Substance: ADALIMUMAB\ISOPROPYL ALCOHOL
     Dosage: UNK

REACTIONS (27)
  - Inflammatory bowel disease [Unknown]
  - Diarrhoea haemorrhagic [Unknown]
  - Leukopenia [Unknown]
  - Cytomegalovirus infection [Recovered/Resolved]
  - Clostridium difficile infection [Recovered/Resolved]
  - Colitis ulcerative [Not Recovered/Not Resolved]
  - Weight decreased [Unknown]
  - Drug ineffective [Unknown]
  - Iron deficiency anaemia [Unknown]
  - Immune system disorder [Unknown]
  - Red blood cell count abnormal [Unknown]
  - Haemoglobin decreased [Unknown]
  - Haematocrit abnormal [Unknown]
  - Mean cell volume abnormal [Unknown]
  - Red cell distribution width abnormal [Unknown]
  - White blood cell disorder [Unknown]
  - Neutrophil percentage abnormal [Unknown]
  - Eosinophil percentage abnormal [Unknown]
  - Lymphocyte percentage abnormal [Unknown]
  - Monocyte count abnormal [Unknown]
  - Platelet count abnormal [Unknown]
  - C-reactive protein abnormal [Unknown]
  - Blood sodium abnormal [Unknown]
  - Blood potassium increased [Unknown]
  - Aspartate aminotransferase abnormal [Unknown]
  - Therapy non-responder [Unknown]
  - Skin reaction [Unknown]

NARRATIVE: CASE EVENT DATE: 20130901
